FAERS Safety Report 22652513 (Version 2)
Quarter: 2024Q4

REPORT INFORMATION
  Report Type: Spontaneous
  Country: US (occurrence: US)
  Receive Date: 20230629
  Receipt Date: 20241125
  Transmission Date: 20250114
  Serious: No
  Sender: SANOFI AVENTIS
  Company Number: US-SA-SAC20230628000454

PATIENT
  Sex: Female
  Weight: 71 kg

DRUGS (30)
  1. DUPIXENT [Suspect]
     Active Substance: DUPILUMAB
     Indication: Asthma
     Dosage: 300 MG, QOW
     Route: 058
     Dates: start: 20210119, end: 2024
  2. DUPIXENT [Suspect]
     Active Substance: DUPILUMAB
     Indication: Nasal polyps
  3. BENADRYL [Concomitant]
     Active Substance: DIPHENHYDRAMINE HYDROCHLORIDE
     Dosage: UNK
  4. DIOXOPROMETHAZINE HCL [Concomitant]
     Dosage: UNK
  5. BOTOX [Concomitant]
     Active Substance: ONABOTULINUMTOXINA
     Dosage: UNK
  6. UBRELVY [Concomitant]
     Active Substance: UBROGEPANT
     Dosage: UNK
  7. ZOLMITRIPTAN [Concomitant]
     Active Substance: ZOLMITRIPTAN
     Dosage: UNK
  8. VENLAFAXINE HCL [Concomitant]
     Active Substance: VENLAFAXINE HYDROCHLORIDE
     Dosage: UNK
  9. LAMOTRIGINE [Concomitant]
     Active Substance: LAMOTRIGINE
     Dosage: UNK
  10. COVID-19 VACCINE [Concomitant]
     Indication: Immunisation
     Dosage: UNK
  11. BUPROPION HYDROCHLORIDE [Concomitant]
     Active Substance: BUPROPION HYDROCHLORIDE
  12. ADVAIR HFA [Concomitant]
     Active Substance: FLUTICASONE PROPIONATE\SALMETEROL XINAFOATE
  13. AJOVY [Concomitant]
     Active Substance: FREMANEZUMAB-VFRM
  14. BENADRYL ALLERGY [Concomitant]
     Active Substance: DIPHENHYDRAMINE HYDROCHLORIDE
  15. REYVOW [Concomitant]
     Active Substance: LASMIDITAN
  16. BENZONATATE [Concomitant]
     Active Substance: BENZONATATE
  17. LEVOCETIRIZINE DIHYDROCHLORIDE [Concomitant]
     Active Substance: LEVOCETIRIZINE DIHYDROCHLORIDE
  18. SPIRIVA RESPIMAT [Concomitant]
     Active Substance: TIOTROPIUM BROMIDE
  19. ALBUTEROL SULFATE [Concomitant]
     Active Substance: ALBUTEROL SULFATE
  20. BOTOX COSMETIC [Concomitant]
     Active Substance: ONABOTULINUMTOXINA
  21. MEMANTINE [Concomitant]
     Active Substance: MEMANTINE
  22. DESVENLAFAXINE SUCCINATE [Concomitant]
     Active Substance: DESVENLAFAXINE SUCCINATE
  23. VYEPTI [Concomitant]
     Active Substance: EPTINEZUMAB-JJMR
  24. AZITHROMYCIN [Concomitant]
     Active Substance: AZITHROMYCIN
  25. ALLEGRA D-12 HOUR [Concomitant]
     Active Substance: FEXOFENADINE HYDROCHLORIDE\PSEUDOEPHEDRINE HYDROCHLORIDE
  26. FAMOTIDINE [Concomitant]
     Active Substance: FAMOTIDINE
  27. IPRATROPIUM BROMIDE [Concomitant]
     Active Substance: IPRATROPIUM BROMIDE
  28. PREDNISONE [Concomitant]
     Active Substance: PREDNISONE
  29. UBRELVY [Concomitant]
     Active Substance: UBROGEPANT
  30. BUDESONIDE [Concomitant]
     Active Substance: BUDESONIDE

REACTIONS (4)
  - Pain [Unknown]
  - COVID-19 [Unknown]
  - Headache [Unknown]
  - Asthma [Unknown]

NARRATIVE: CASE EVENT DATE: 20240101
